FAERS Safety Report 23771887 (Version 1)
Quarter: 2024Q2

REPORT INFORMATION
  Report Type: Spontaneous
  Country: US (occurrence: US)
  Receive Date: 20240423
  Receipt Date: 20240423
  Transmission Date: 20240717
  Serious: No
  Sender: FDA-Public Use
  Company Number: US-SCILEX PHARMACEUTICALS INC.-US-SOR-23-00036

PATIENT
  Age: 83 Year
  Sex: Female

DRUGS (2)
  1. ZTLIDO [Suspect]
     Active Substance: LIDOCAINE
     Indication: Pain
     Dosage: UNK
  2. ZTLIDO [Suspect]
     Active Substance: LIDOCAINE
     Dosage: CUTTING THEM IN HALF

REACTIONS (2)
  - Off label use [Unknown]
  - Drug ineffective [Unknown]
